FAERS Safety Report 26105245 (Version 1)
Quarter: 2025Q4

REPORT INFORMATION
  Report Type: Spontaneous
  Country: US (occurrence: US)
  Receive Date: 20251201
  Receipt Date: 20251201
  Transmission Date: 20260118
  Serious: No
  Sender: ROCHE
  Company Number: US-ROCHE-10000443415

PATIENT
  Age: 79 Year
  Sex: Male

DRUGS (1)
  1. SUSVIMO [Suspect]
     Active Substance: RANIBIZUMAB
     Indication: Neovascular age-related macular degeneration
     Route: 042
     Dates: start: 20250109

REACTIONS (1)
  - Muscle spasms [Not Recovered/Not Resolved]
